FAERS Safety Report 14588967 (Version 6)
Quarter: 2019Q1

REPORT INFORMATION
  Report Type: Spontaneous
  Country: JP (occurrence: JP)
  Receive Date: 20180301
  Receipt Date: 20190304
  Transmission Date: 20190417
  Serious: Yes (Life-Threatening, Hospitalization, Other)
  Sender: FDA-Public Use
  Company Number: JP-TAKEDA-2018TJP005484

PATIENT
  Age: 71 Year
  Sex: Female
  Weight: 40.4 kg

DRUGS (16)
  1. CLARITH [Concomitant]
     Active Substance: CLARITHROMYCIN
     Dosage: 50 MG, BID
     Route: 048
     Dates: start: 20170908
  2. BAKTAR [Concomitant]
     Active Substance: SULFAMETHOXAZOLE\TRIMETHOPRIM
     Dosage: 1 DF, QD
     Route: 048
     Dates: start: 20170908
  3. FLUCONAZOLE. [Concomitant]
     Active Substance: FLUCONAZOLE
     Dosage: 100 MG, QD
     Route: 065
     Dates: start: 20170908
  4. BAYASPIRIN [Concomitant]
     Active Substance: ASPIRIN
     Dosage: 100 MG, QD
     Route: 048
     Dates: start: 20170908
  5. ASTRIC [Concomitant]
     Active Substance: ACYCLOVIR
     Dosage: 200 MG, QD
     Route: 048
     Dates: start: 20170908
  6. MAGMITT [Concomitant]
     Active Substance: MAGNESIUM OXIDE
     Dosage: 500 MG, TID
     Route: 048
     Dates: start: 20170908
  7. REVLIMID [Concomitant]
     Active Substance: LENALIDOMIDE
     Indication: PLASMA CELL MYELOMA
     Dosage: 10 MG, QD
     Route: 048
     Dates: start: 20180130, end: 20180212
  8. REVLIMID [Concomitant]
     Active Substance: LENALIDOMIDE
     Dosage: 10 MG, QD
     Route: 048
     Dates: start: 20180307
  9. CALONAL [Concomitant]
     Active Substance: ACETAMINOPHEN
     Dosage: 400 MG, BID
     Route: 065
     Dates: start: 20170908
  10. LENADEX [Concomitant]
     Active Substance: DEXAMETHASONE ACETATE
     Indication: PLASMA CELL MYELOMA
     Dosage: 12 MG, 1/WEEK
     Route: 048
     Dates: start: 20180130
  11. CYMBALTA [Concomitant]
     Active Substance: DULOXETINE HYDROCHLORIDE
     Dosage: 20 MG, QD
     Route: 048
     Dates: start: 20170908
  12. TRAMAL [Concomitant]
     Active Substance: TRAMADOL
     Dosage: 25 MG, TID
     Route: 048
     Dates: start: 20170908
  13. NINLARO [Suspect]
     Active Substance: IXAZOMIB CITRATE
     Indication: PLASMA CELL MYELOMA
     Dosage: 4 MG, 1/WEEK
     Route: 048
     Dates: start: 20180130, end: 20180213
  14. NEXIUM [Concomitant]
     Active Substance: ESOMEPRAZOLE MAGNESIUM
     Dosage: 20 MG, QD
     Route: 048
     Dates: start: 20170908
  15. CARBOCISTEINE [Concomitant]
     Active Substance: CARBOCYSTEINE
     Dosage: 500 MG, TID
     Route: 048
     Dates: start: 20170908
  16. FEXOFENADINE HYDROCHLORIDE. [Concomitant]
     Active Substance: FEXOFENADINE HYDROCHLORIDE
     Dosage: 60 MG, BID
     Route: 048
     Dates: start: 20170908

REACTIONS (19)
  - Decreased appetite [Recovered/Resolved]
  - Contusion [Unknown]
  - Blood lactate dehydrogenase increased [Recovered/Resolved]
  - Disseminated intravascular coagulation [Recovered/Resolved]
  - Diarrhoea [Recovered/Resolved]
  - Electrolyte imbalance [Recovered/Resolved]
  - Neuropathy peripheral [Not Recovered/Not Resolved]
  - Nausea [Unknown]
  - Hyperferritinaemia [Recovered/Resolved]
  - Thirst [Unknown]
  - Platelet count decreased [Recovered/Resolved]
  - Haemophagocytic lymphohistiocytosis [Recovered/Resolved]
  - Dehydration [Recovering/Resolving]
  - Cytokine storm [Unknown]
  - Blood creatinine increased [Recovered/Resolved]
  - Prerenal failure [Recovering/Resolving]
  - Dizziness [Unknown]
  - Constipation [Unknown]
  - Malaise [Unknown]

NARRATIVE: CASE EVENT DATE: 20180206
